FAERS Safety Report 16341722 (Version 2)
Quarter: 2019Q2

REPORT INFORMATION
  Report Type: Report from Study
  Country: None (occurrence: NL)
  Receive Date: 20190522
  Receipt Date: 20190531
  Transmission Date: 20190711
  Serious: Yes (Death)
  Sender: FDA-Public Use
  Company Number: NL-ABBVIE-19P-114-2790316-00

PATIENT
  Age: 91 Year
  Sex: Male

DRUGS (2)
  1. LUCRIN [Suspect]
     Active Substance: LEUPROLIDE ACETATE
     Indication: PRODUCT USED FOR UNKNOWN INDICATION
     Dosage: 30 MILLIGRAM, Q4MONTHS
     Route: 058
     Dates: start: 20130807
  2. LUCRIN [Suspect]
     Active Substance: LEUPROLIDE ACETATE
     Indication: PROSTATE CANCER
     Dosage: 11.25 MILLIGRAM, Q3MONTHS
     Route: 058
     Dates: start: 20110614, end: 20130515

REACTIONS (1)
  - Death [Fatal]

NARRATIVE: CASE EVENT DATE: 20130914
